FAERS Safety Report 12247193 (Version 2)
Quarter: 2016Q3

REPORT INFORMATION
  Report Type: Report from Study
  Country: BR (occurrence: BR)
  Receive Date: 20160407
  Receipt Date: 20160705
  Transmission Date: 20161109
  Serious: Yes (Hospitalization)
  Sender: FDA-Public Use
  Company Number: PHHY2016BR044667

PATIENT
  Age: 33 Year
  Sex: Female
  Weight: 70 kg

DRUGS (4)
  1. EXJADE [Suspect]
     Active Substance: DEFERASIROX
     Indication: BONE MARROW FAILURE
     Dosage: 2 DF OF 500 MG (15 MG/KG) QD
     Route: 065
     Dates: start: 201508
  2. EXJADE [Suspect]
     Active Substance: DEFERASIROX
     Dosage: 2 DF OF 500 MG, UNK
     Route: 065
     Dates: start: 201603
  3. EXJADE [Suspect]
     Active Substance: DEFERASIROX
     Dosage: 4 DF, UNK
     Route: 065
  4. CYCLOSPORINE. [Concomitant]
     Active Substance: CYCLOSPORINE
     Indication: PRODUCT USED FOR UNKNOWN INDICATION
     Route: 065

REACTIONS (15)
  - Haemorrhage [Unknown]
  - Abasia [Unknown]
  - Drug-induced liver injury [Unknown]
  - Nausea [Unknown]
  - Abdominal distension [Unknown]
  - Yellow skin [Unknown]
  - Dyspepsia [Unknown]
  - Product quality issue [Unknown]
  - Blood iron increased [Unknown]
  - Weight bearing difficulty [Unknown]
  - Urinary tract infection [Unknown]
  - Dysuria [Unknown]
  - Platelet count decreased [Unknown]
  - Vomiting [Unknown]
  - Decreased immune responsiveness [Unknown]

NARRATIVE: CASE EVENT DATE: 201511
